FAERS Safety Report 9047216 (Version 1)
Quarter: 2013Q1

REPORT INFORMATION
  Report Type: Report from Study
  Country: US (occurrence: US)
  Receive Date: 20130130
  Receipt Date: 20130130
  Transmission Date: 20140127
  Serious: No
  Sender: FDA-Public Use
  Company Number: US-ABBOTT-12P-163-0976086-00

PATIENT
  Age: 60 Year
  Sex: Female

DRUGS (7)
  1. HUMIRA [Suspect]
     Indication: CROHN^S DISEASE
     Route: 058
  2. HUMIRA [Suspect]
     Indication: CROHN^S DISEASE
  3. 6-MP [Concomitant]
     Indication: PRODUCT USED FOR UNKNOWN INDICATION
  4. METOPROLOL [Concomitant]
     Indication: HYPERTENSION
  5. ZOCOR [Concomitant]
     Indication: BLOOD CHOLESTEROL INCREASED
  6. AMBIEN [Concomitant]
     Indication: INSOMNIA
  7. FIORICET [Concomitant]
     Indication: MIGRAINE

REACTIONS (2)
  - Dry eye [Not Recovered/Not Resolved]
  - Lyme disease [Unknown]
